FAERS Safety Report 17052647 (Version 1)
Quarter: 2019Q4

REPORT INFORMATION
  Report Type: Spontaneous
  Country: FR (occurrence: FR)
  Receive Date: 20191120
  Receipt Date: 20191120
  Transmission Date: 20200122
  Serious: Yes (Death, Hospitalization)
  Sender: FDA-Public Use
  Company Number: FR-MYLANLABS-2019M1112172

PATIENT
  Age: 32 Year
  Sex: Female

DRUGS (4)
  1. DEXERYL                            /01579901/ [Concomitant]
     Active Substance: GLYCERIN\MINERAL OIL\PETROLATUM
     Indication: PRODUCT USED FOR UNKNOWN INDICATION
     Route: 061
  2. BETAMETHASONE. [Suspect]
     Active Substance: BETAMETHASONE
     Indication: NETHERTON^S SYNDROME
     Dosage: SHE USED 7.2 KG/YEAR OF BETAMETHASONE (20 TUBES PER MONTH)
     Route: 061
  3. PETROLEUM JELLY [Concomitant]
     Active Substance: PETROLATUM
     Indication: NETHERTON^S SYNDROME
     Route: 061
  4. METHOTREXATE. [Suspect]
     Active Substance: METHOTREXATE
     Indication: RHEUMATOID ARTHRITIS
     Route: 065

REACTIONS (4)
  - Septic shock [Fatal]
  - Adrenocortical insufficiency acute [Fatal]
  - Adrenal insufficiency [Fatal]
  - Multiple organ dysfunction syndrome [Fatal]
